FAERS Safety Report 9381221 (Version 1)
Quarter: 2013Q3

REPORT INFORMATION
  Report Type: Spontaneous
  Country: US (occurrence: US)
  Receive Date: 20130703
  Receipt Date: 20130703
  Transmission Date: 20140515
  Serious: Yes (Other)
  Sender: FDA-Public Use
  Company Number: US-ROCHE-1242574

PATIENT
  Sex: Female

DRUGS (2)
  1. VALCYTE [Suspect]
     Indication: LUNG TRANSPLANT
     Dosage: 2 PILLS IN THE MORNING
     Route: 048
     Dates: start: 201111
  2. CYTOVENE IV [Suspect]
     Indication: CYTOMEGALOVIRUS INFECTION
     Route: 042

REACTIONS (4)
  - Cytomegalovirus infection [Recovering/Resolving]
  - White blood cell count abnormal [Recovered/Resolved]
  - Renal disorder [Recovered/Resolved]
  - Gastric disorder [Recovered/Resolved]
